FAERS Safety Report 12466856 (Version 1)
Quarter: 2016Q2

REPORT INFORMATION
  Report Type: Spontaneous
  Country: US (occurrence: None)
  Receive Date: 20160614
  Receipt Date: 20160614
  Transmission Date: 20160815
  Serious: Yes (Other)
  Sender: FDA-Public Use
  Company Number: None

PATIENT
  Sex: Female

DRUGS (2)
  1. AZITHROMYCIN, 250 MG [Suspect]
     Active Substance: AZITHROMYCIN ANHYDROUS
     Indication: INFECTION
     Dosage: 6 TABLET (S) 2 TODAY THEN 1 TAB TAKEN BY MOUTH
     Route: 048
  2. HEARING AIDS [Concomitant]

REACTIONS (1)
  - Deafness [None]
